FAERS Safety Report 15267382 (Version 1)
Quarter: 2018Q3

REPORT INFORMATION
  Report Type: Spontaneous
  Country: US (occurrence: US)
  Receive Date: 20180724
  Receipt Date: 20180724
  Transmission Date: 20181010
  Serious: Yes (Life-Threatening, Hospitalization, Other)
  Sender: FDA-Public Use
  Company Number: None

PATIENT
  Age: 58 Year
  Sex: Female
  Weight: 75.15 kg

DRUGS (4)
  1. VALSARTAN. [Suspect]
     Active Substance: VALSARTAN
     Indication: HYPERTENSION
     Route: 048
  2. VITAMINS [Concomitant]
     Active Substance: VITAMINS
  3. LORAZEPAM. [Concomitant]
     Active Substance: LORAZEPAM
  4. POTASSIUM [Concomitant]
     Active Substance: POTASSIUM

REACTIONS (2)
  - Carcinogenicity [None]
  - Colon cancer [None]

NARRATIVE: CASE EVENT DATE: 20150504
